FAERS Safety Report 5596150-7 (Version None)
Quarter: 2008Q1

REPORT INFORMATION
  Report Type: 
  Country: None (occurrence: None)
  Receive Date: 20080118
  Receipt Date: 20080111
  Transmission Date: 20080703
  Serious: Yes (Death, Hospitalization, Other)
  Sender: FDA-Public Use
  Company Number: HQWYE327222JUL04

PATIENT
  Sex: Female
  Weight: 82.17 kg

DRUGS (3)
  1. PREMPRO [Suspect]
  2. MEDROXYPROGESTERONE ACETATE [Suspect]
  3. CONJUGATED ESTROGENS [Suspect]

REACTIONS (2)
  - BREAST CANCER METASTATIC [None]
  - OVARIAN CANCER METASTATIC [None]
